FAERS Safety Report 11415533 (Version 1)
Quarter: 2015Q3

REPORT INFORMATION
  Report Type: Spontaneous
  Country: US (occurrence: None)
  Receive Date: 20150824
  Receipt Date: 20150824
  Transmission Date: 20151125
  Serious: Yes (Disabling)
  Sender: FDA-Public Use
  Company Number: None

PATIENT
  Age: 52 Year
  Sex: Female
  Weight: 83.92 kg

DRUGS (3)
  1. CEPHALEXIN. [Suspect]
     Active Substance: CEPHALEXIN
     Indication: POST PROCEDURAL INFECTION
     Route: 048
     Dates: start: 20150819
  2. FEMDOPHILUS BY JARROW [Concomitant]
  3. BREAST EXPANDER PLACED POST-MASTECTOMY [Concomitant]

REACTIONS (7)
  - Cold sweat [None]
  - Abdominal rigidity [None]
  - Hyperhidrosis [None]
  - Nausea [None]
  - Vomiting [None]
  - Presyncope [None]
  - Dizziness [None]

NARRATIVE: CASE EVENT DATE: 20150819
